FAERS Safety Report 8380698-6 (Version None)
Quarter: 2012Q2

REPORT INFORMATION
  Report Type: 
  Country: None (occurrence: None)
  Receive Date: 20120523
  Receipt Date: 20120516
  Transmission Date: 20120825
  Serious: Yes (Other)
  Sender: FDA-Public Use
  Company Number: US-ROCHE-1017687

PATIENT
  Sex: Male

DRUGS (1)
  1. ZELBORAF [Suspect]
     Indication: PRODUCT USED FOR UNKNOWN INDICATION

REACTIONS (13)
  - JAUNDICE [None]
  - HYPOAESTHESIA [None]
  - VOMITING [None]
  - NAUSEA [None]
  - MYALGIA [None]
  - HEPATIC ENZYME INCREASED [None]
  - ARTHRALGIA [None]
  - BREATH ODOUR [None]
  - PRURITUS [None]
  - PNEUMONIA [None]
  - DECREASED APPETITE [None]
  - ILL-DEFINED DISORDER [None]
  - FATIGUE [None]
